FAERS Safety Report 5019771-9 (Version None)
Quarter: 2006Q2

REPORT INFORMATION
  Report Type: 
  Country: None (occurrence: None)
  Receive Date: 20060607
  Receipt Date: 20060530
  Transmission Date: 20061013
  Serious: Yes (Hospitalization)
  Sender: FDA-Public Use
  Company Number: US-SP-2006-01320

PATIENT
  Age: 12 Year
  Sex: Male

DRUGS (3)
  1. MENACTRA [Suspect]
     Indication: IMMUNISATION
     Route: 065
     Dates: start: 20050802
  2. DIPHTHERIA AND TETANUS TOXOIDS [Suspect]
     Indication: IMMUNISATION
     Route: 065
  3. TUBERCULIN PPD [Suspect]
     Indication: IMMUNISATION
     Route: 065

REACTIONS (5)
  - ARTERIOVENOUS MALFORMATION [None]
  - HAEMORRHAGE [None]
  - HEADACHE [None]
  - MUSCULAR WEAKNESS [None]
  - VASCULAR RUPTURE [None]
